FAERS Safety Report 9894093 (Version 2)
Quarter: 2014Q1

REPORT INFORMATION
  Report Type: Spontaneous
  Country: SK (occurrence: SK)
  Receive Date: 20140213
  Receipt Date: 20140320
  Transmission Date: 20141002
  Serious: Yes (Other)
  Sender: FDA-Public Use
  Company Number: SK-CELGENEUS-260-21880-14015284

PATIENT
  Age: 49 Year
  Sex: Male

DRUGS (9)
  1. REVLIMID [Suspect]
     Indication: PLASMA CELL MYELOMA
     Route: 048
     Dates: start: 201106, end: 201202
  2. REVLIMID [Suspect]
     Route: 048
     Dates: start: 201205, end: 201401
  3. DEXAMETHASONE [Concomitant]
     Indication: PLASMA CELL MYELOMA
     Route: 065
     Dates: start: 200206, end: 200209
  4. DEXAMETHASONE [Concomitant]
     Route: 065
     Dates: start: 200810, end: 200905
  5. DEXAMETHASONE [Concomitant]
     Route: 065
     Dates: start: 201106, end: 201202
  6. DEXAMETHASONE [Concomitant]
     Route: 065
     Dates: start: 201205, end: 201401
  7. BISPHOSPHONATES [Concomitant]
     Indication: ANAEMIA
     Route: 065
  8. LMWH [Concomitant]
     Indication: ANAEMIA
     Route: 065
  9. TRANSFUSIONS [Concomitant]
     Indication: PRODUCT USED FOR UNKNOWN INDICATION
     Route: 041

REACTIONS (5)
  - Osteonecrosis [Unknown]
  - Anaemia [Recovered/Resolved]
  - Diarrhoea [Unknown]
  - Oedema [Unknown]
  - Depression [Unknown]
